FAERS Safety Report 9068419 (Version 1)
Quarter: 2013Q1

REPORT INFORMATION
  Report Type: Spontaneous
  Country: US (occurrence: None)
  Receive Date: 20130212
  Receipt Date: 20130212
  Transmission Date: 20140127
  Serious: Yes (Life-Threatening, Other)
  Sender: FDA-Public Use
  Company Number: None

PATIENT
  Age: 17 Year
  Sex: Male
  Weight: 104.33 kg

DRUGS (6)
  1. PROZAC [Suspect]
     Indication: DEPRESSION
  2. PROZAC [Suspect]
     Indication: AFFECTIVE DISORDER
  3. GEODON [Suspect]
     Indication: SCHIZOPHRENIA
  4. GEODON [Suspect]
     Indication: MANIA
  5. FANAPT [Suspect]
  6. SEROQUEL [Suspect]

REACTIONS (1)
  - Suicide attempt [None]
